FAERS Safety Report 6422326-2 (Version None)
Quarter: 2009Q4

REPORT INFORMATION
  Report Type: 
  Country: None (occurrence: None)
  Receive Date: 20091030
  Receipt Date: 20091022
  Transmission Date: 20100525
  Serious: Yes (Death)
  Sender: FDA-Public Use
  Company Number: US-ABBOTT-09P-163-0602172-00

PATIENT
  Age: 60 Year
  Sex: Male

DRUGS (4)
  1. DEPAKOTE [Suspect]
     Indication: CONVULSION
     Dosage: UNKNOWN
     Route: 065
  2. TOPAMAX [Suspect]
     Indication: CONVULSION
  3. KEPPRA [Suspect]
     Indication: CONVULSION
  4. PHENYTOIN [Suspect]
     Indication: CONVULSION

REACTIONS (3)
  - HEPATIC FAILURE [None]
  - LOSS OF CONSCIOUSNESS [None]
  - RESPIRATORY FAILURE [None]
